FAERS Safety Report 17304314 (Version 1)
Quarter: 2020Q1

REPORT INFORMATION
  Report Type: Spontaneous
  Country: US (occurrence: US)
  Receive Date: 20200106
  Receipt Date: 20200106
  Transmission Date: 20200409
  Serious: No
  Sender: FDA-Public Use
  Company Number: None

PATIENT
  Age: 32 Year
  Sex: Female

DRUGS (17)
  1. CETIRIZINE [Concomitant]
     Active Substance: CETIRIZINE HYDROCHLORIDE
  2. TRAZODONE [Concomitant]
     Active Substance: TRAZODONE HYDROCHLORIDE
  3. VITAMIN D [Concomitant]
     Active Substance: VITAMIN D NOS
  4. NYSTATIN. [Concomitant]
     Active Substance: NYSTATIN
  5. ARAVA [Concomitant]
     Active Substance: LEFLUNOMIDE
  6. LEXAPRO [Concomitant]
     Active Substance: ESCITALOPRAM OXALATE
  7. MELATONIN [Concomitant]
     Active Substance: MELATONIN
  8. TYLENOL [Concomitant]
     Active Substance: ACETAMINOPHEN
  9. COSENTYX [Suspect]
     Active Substance: SECUKINUMAB
     Indication: PSORIASIS
     Route: 058
     Dates: start: 20171204
  10. LEFLUNOMIDE. [Concomitant]
     Active Substance: LEFLUNOMIDE
  11. ENTRESTO [Concomitant]
     Active Substance: SACUBITRIL\VALSARTAN
  12. KEPPRA [Concomitant]
     Active Substance: LEVETIRACETAM
  13. POTASSIUM ALUM. [Concomitant]
     Active Substance: POTASSIUM ALUM
  14. PROBIOTICS [Concomitant]
     Active Substance: PROBIOTICS NOS
  15. OGESTREL [Concomitant]
     Active Substance: ETHINYL ESTRADIOL\NORGESTREL
  16. FAMOTIDINE. [Concomitant]
     Active Substance: FAMOTIDINE
  17. CARVEDILOL. [Concomitant]
     Active Substance: CARVEDILOL

REACTIONS (1)
  - Cardiomegaly [None]
